FAERS Safety Report 8000053-8 (Version None)
Quarter: 2011Q4

REPORT INFORMATION
  Report Type: 
  Country: None (occurrence: None)
  Receive Date: 20111222
  Receipt Date: 20111212
  Transmission Date: 20120403
  Serious: No
  Sender: FDA-Public Use
  Company Number: US-BIOGENIDEC-2011BI046959

PATIENT
  Sex: Female

DRUGS (1)
  1. AVONEX [Suspect]
     Indication: MULTIPLE SCLEROSIS
     Route: 030
     Dates: start: 19970710, end: 19980610

REACTIONS (4)
  - POLYARTHRITIS [None]
  - DIZZINESS [None]
  - NAUSEA [None]
  - MUSCULAR WEAKNESS [None]
